FAERS Safety Report 17690132 (Version 1)
Quarter: 2020Q2

REPORT INFORMATION
  Report Type: Report from Study
  Country: BR (occurrence: BR)
  Receive Date: 20200421
  Receipt Date: 20200421
  Transmission Date: 20200714
  Serious: Yes (Hospitalization, Other)
  Sender: FDA-Public Use
  Company Number: NVSC2019BR013625

PATIENT
  Sex: Female

DRUGS (2)
  1. COSENTYX [Suspect]
     Active Substance: SECUKINUMAB
     Dosage: UNK
     Route: 065
     Dates: start: 20190924
  2. COSENTYX [Suspect]
     Active Substance: SECUKINUMAB
     Indication: PSORIATIC ARTHROPATHY
     Dosage: UNK
     Route: 065
     Dates: start: 20190917

REACTIONS (6)
  - Malaise [Unknown]
  - Skin burning sensation [Not Recovered/Not Resolved]
  - Leprosy [Unknown]
  - Macule [Not Recovered/Not Resolved]
  - Gait disturbance [Recovered/Resolved]
  - Hypersensitivity [Unknown]
